FAERS Safety Report 8874903 (Version 1)
Quarter: 2012Q4

REPORT INFORMATION
  Report Type: 
  Country: US (occurrence: US)
  Receive Date: 20121023
  Receipt Date: 20121023
  Transmission Date: 20130627
  Serious: No
  Sender: FDA-Public Use
  Company Number: US-ROCHE-GNE242842

PATIENT
  Age: 63 Year
  Sex: Male

DRUGS (1)
  1. RAPTIVA [Suspect]
     Indication: PSORIASIS
     Dosage: 1.1 mL, 1/Week
     Route: 058
     Dates: start: 20070406, end: 20070608

REACTIONS (4)
  - Psoriasis [Unknown]
  - Chapped lips [Unknown]
  - Sunburn [Unknown]
  - Drug ineffective [Unknown]
